FAERS Safety Report 15942850 (Version 2)
Quarter: 2019Q1

REPORT INFORMATION
  Report Type: Report from Study
  Country: IT (occurrence: IT)
  Receive Date: 20190209
  Receipt Date: 20190221
  Transmission Date: 20190417
  Serious: Yes (Hospitalization, Other)
  Sender: FDA-Public Use
  Company Number: IT-ACCORD-106262

PATIENT
  Age: 68 Year
  Sex: Male

DRUGS (6)
  1. SIMVASTATIN. [Suspect]
     Active Substance: SIMVASTATIN
     Indication: PRODUCT USED FOR UNKNOWN INDICATION
     Dosage: REGIMEN 1
  2. CERIVASTATIN/CERIVASTATIN SODIUM [Interacting]
     Active Substance: CERIVASTATIN SODIUM
     Indication: PRODUCT USED FOR UNKNOWN INDICATION
  3. BEZAFIBRATE [Interacting]
     Active Substance: BEZAFIBRATE
     Indication: PRODUCT USED FOR UNKNOWN INDICATION
  4. FLU SEASONAL TIV DRESDEN [Interacting]
     Active Substance: INFLUENZA VIRUS VACCINE TRIVALENT TYPE A+B
     Indication: PROPHYLAXIS
     Route: 030
  5. ACETYLSALICYLIC ACID [Interacting]
     Active Substance: ASPIRIN
  6. ISOSORBIDE. [Concomitant]
     Active Substance: ISOSORBIDE

REACTIONS (11)
  - Blood creatinine increased [Recovered/Resolved]
  - Rhabdomyolysis [Recovered/Resolved]
  - Myoglobinuria [Recovered/Resolved]
  - Laboratory test abnormal [Recovered/Resolved]
  - Drug interaction [Recovered/Resolved]
  - Myalgia [Recovered/Resolved]
  - Blood creatine phosphokinase increased [Recovered/Resolved]
  - Hyperkalaemia [Recovered/Resolved]
  - Acute kidney injury [Recovered/Resolved]
  - Muscular weakness [Recovered/Resolved]
  - Blood urea increased [Recovered/Resolved]

NARRATIVE: CASE EVENT DATE: 19991005
